FAERS Safety Report 4384826-9 (Version None)
Quarter: 2004Q2

REPORT INFORMATION
  Report Type: 
  Country: None (occurrence: None)
  Receive Date: 20040621
  Receipt Date: 20040616
  Transmission Date: 20050107
  Serious: Yes (Other)
  Sender: FDA-Public Use
  Company Number: GBWYE792801JUN04

PATIENT
  Sex: Male

DRUGS (2)
  1. EFFEXOR [Suspect]
  2. HEROIN (DIAMORPHINE) [Concomitant]

REACTIONS (1)
  - SELF MUTILATION [None]
